FAERS Safety Report 26048384 (Version 1)
Quarter: 2025Q4

REPORT INFORMATION
  Report Type: Spontaneous
  Country: US (occurrence: US)
  Receive Date: 20251114
  Receipt Date: 20251114
  Transmission Date: 20260117
  Serious: Yes (Other)
  Sender: PFIZER
  Company Number: US-PFIZER INC-202500222076

PATIENT
  Age: 46 Year
  Sex: Female

DRUGS (1)
  1. VELSIPITY [Suspect]
     Active Substance: ETRASIMOD ARGININE
     Indication: Colitis ulcerative
     Dosage: 2 MG TAKE 1 TABLET BY MOUTH ONCE A DAY
     Route: 048

REACTIONS (7)
  - Rectal haemorrhage [Unknown]
  - Impaired gastric emptying [Unknown]
  - Dyspepsia [Unknown]
  - Nausea [Unknown]
  - Pseudopolyposis [Unknown]
  - Haemorrhoids [Unknown]
  - Constipation [Unknown]
